FAERS Safety Report 5252943-7 (Version None)
Quarter: 2007Q1

REPORT INFORMATION
  Report Type: 
  Country: None (occurrence: None)
  Receive Date: 20070301
  Receipt Date: 20070226
  Transmission Date: 20070707
  Serious: Yes (Disabling)
  Sender: FDA-Public Use
  Company Number: DE-AVENTIS-200710430DE

PATIENT
  Age: 50 Year
  Sex: Male
  Weight: 70 kg

DRUGS (14)
  1. INSUMAN BASAL                      /01428201/ [Suspect]
     Route: 058
     Dates: start: 20070123, end: 20070206
  2. LANTUS [Suspect]
     Dosage: DOSE: NOT REPORTED
     Route: 058
     Dates: start: 20070123, end: 20070206
  3. INSULINS NOS [Concomitant]
     Dosage: DOSE: NOT REPORTED
     Route: 058
     Dates: start: 19890101
  4. BETA BLOCKING AGENTS [Concomitant]
     Indication: DRUG USE FOR UNKNOWN INDICATION
     Dosage: DOSE: NOT REPORTED
     Route: 048
  5. ISOPTIN [Concomitant]
     Indication: DRUG USE FOR UNKNOWN INDICATION
     Dosage: DOSE: NOT REPORTED
     Route: 048
  6. ACE INHIBITOR NOS [Concomitant]
     Indication: DRUG USE FOR UNKNOWN INDICATION
     Dosage: DOSE: NOT REPORTED
     Route: 048
  7. ASPIRIN [Concomitant]
     Route: 048
  8. ASPIRIN [Concomitant]
     Route: 048
  9. METOPROLOL 200 [Concomitant]
     Route: 048
  10. METOPROLOL 200 [Concomitant]
     Indication: HYPERTENSION
     Route: 048
  11. VERAPAMIL 80 [Concomitant]
     Route: 048
  12. VERAPAMIL 80 [Concomitant]
     Indication: HYPERTENSION
     Route: 048
  13. CIL [Concomitant]
     Route: 048
  14. CIL [Concomitant]
     Route: 048

REACTIONS (3)
  - CONDITION AGGRAVATED [None]
  - PUPILS UNEQUAL [None]
  - VISUAL DISTURBANCE [None]
